FAERS Safety Report 13735661 (Version 1)
Quarter: 2017Q3

REPORT INFORMATION
  Report Type: Spontaneous
  Country: US (occurrence: US)
  Receive Date: 20170707
  Receipt Date: 20170707
  Transmission Date: 20171127
  Serious: Yes (Other)
  Sender: FDA-Public Use
  Company Number: None

PATIENT
  Sex: Male

DRUGS (1)
  1. STELARA [Suspect]
     Active Substance: USTEKINUMAB
     Indication: PSORIASIS
     Dosage: 90MG ONE SYRINGE EVERY 3 MONTHS SUB-Q
     Route: 058
     Dates: start: 20160913

REACTIONS (3)
  - Purpura [None]
  - Pain [None]
  - Petechiae [None]
